FAERS Safety Report 4845350-X (Version None)
Quarter: 2005Q4

REPORT INFORMATION
  Report Type: 
  Country: None (occurrence: None)
  Receive Date: 20051205
  Receipt Date: 20051201
  Transmission Date: 20060501
  Serious: Yes (Other)
  Sender: FDA-Public Use
  Company Number: SANDOZ-MAR-04-0173

PATIENT
  Age: 17 Year
  Sex: Female

DRUGS (1)
  1. AMOXICILLIN AND CLAVULANATE POTASSIUM [Suspect]
     Indication: PHARYNGOLARYNGEAL PAIN
     Dosage: 2G PER DAY
     Route: 048

REACTIONS (3)
  - COUGH [None]
  - EPIGLOTTITIS [None]
  - RESPIRATORY DISORDER [None]
